FAERS Safety Report 15468746 (Version 5)
Quarter: 2019Q3

REPORT INFORMATION
  Report Type: Spontaneous
  Country: JP (occurrence: JP)
  Receive Date: 20181005
  Receipt Date: 20190703
  Transmission Date: 20191004
  Serious: Yes (Hospitalization, Other)
  Sender: FDA-Public Use
  Company Number: JP-JNJFOC-20181007536

PATIENT
  Age: 78 Year
  Sex: Male
  Weight: 93 kg

DRUGS (14)
  1. METGLUCO [Concomitant]
     Active Substance: METFORMIN HYDROCHLORIDE
     Indication: TYPE 2 DIABETES MELLITUS
     Dosage: BEFORE ADMINISTRATION OF CANAGLIFLOZIN
     Route: 048
  2. LYXUMIA [Concomitant]
     Active Substance: LIXISENATIDE
     Route: 051
     Dates: start: 20180904
  3. ALLOPURINOL. [Concomitant]
     Active Substance: ALLOPURINOL
     Dosage: BEFORE ADMINISTRATION OF CANAGLIFLOZIN
     Route: 048
  4. PLAVIX [Concomitant]
     Active Substance: CLOPIDOGREL BISULFATE
     Dosage: BEFORE ADMINISTRATION OF CANAGLIFLOZIN
     Route: 048
  5. LYXUMIA [Concomitant]
     Active Substance: LIXISENATIDE
     Route: 051
     Dates: start: 201704, end: 20180903
  6. AZILVA [Concomitant]
     Active Substance: AZILSARTAN KAMEDOXOMIL
     Indication: TYPE 2 DIABETES MELLITUS
     Route: 048
     Dates: start: 20151211
  7. BROTIZOLAM [Concomitant]
     Active Substance: BROTIZOLAM
     Dosage: BEFORE ADMINISTRATION OF CANAGLIFLOZIN
     Route: 048
  8. CANAGLIFLOZIN TABLET [Suspect]
     Active Substance: CANAGLIFLOZIN
     Indication: TYPE 2 DIABETES MELLITUS
     Route: 048
     Dates: start: 20160917
  9. AZOSEMIDE [Concomitant]
     Active Substance: AZOSEMIDE
     Dosage: BEFORE ADMINISTRATION OF CANAGLIFLOZIN
     Route: 048
     Dates: end: 20180415
  10. AMLODIPINE [Concomitant]
     Active Substance: AMLODIPINE BESYLATE
     Dosage: BEFORE ADMINISTRATION OF CANAGLIFLOZIN
     Route: 048
  11. CERCINE [Concomitant]
     Active Substance: DIAZEPAM
     Dosage: BEFORE ADMINISTRATION OF CANAGLIFLOZIN
     Route: 048
  12. NEXIUM [Concomitant]
     Active Substance: ESOMEPRAZOLE MAGNESIUM
     Indication: PROPHYLAXIS
     Dosage: BEFORE ADMINISTRATION OF CANAGLIFLOZIN
     Route: 048
  13. LYXUMIA [Concomitant]
     Active Substance: LIXISENATIDE
     Indication: TYPE 2 DIABETES MELLITUS
     Route: 051
     Dates: start: 20150526, end: 20170220
  14. LYXUMIA [Concomitant]
     Active Substance: LIXISENATIDE
     Route: 051
     Dates: start: 20170221, end: 201704

REACTIONS (3)
  - Subdural hygroma [Recovering/Resolving]
  - Fall [Unknown]
  - Abdominal pain upper [Recovering/Resolving]

NARRATIVE: CASE EVENT DATE: 2017
